FAERS Safety Report 26207191 (Version 1)
Quarter: 2025Q4

REPORT INFORMATION
  Report Type: Spontaneous
  Country: EU (occurrence: EU)
  Receive Date: 20251229
  Receipt Date: 20251229
  Transmission Date: 20260118
  Serious: Yes (Other)
  Sender: AUROBINDO
  Company Number: EU-PPDUS-2024RHM000654

PATIENT
  Age: 42 Year
  Sex: Male
  Weight: 114 kg

DRUGS (27)
  1. RAMIPRIL [Suspect]
     Active Substance: RAMIPRIL
     Indication: Hypertension
     Dosage: 5 MILLIGRAM
     Route: 065
  2. RAMIPRIL [Suspect]
     Active Substance: RAMIPRIL
     Dosage: 2.5 MILLIGRAM, QD
     Route: 065
     Dates: start: 20240919
  3. RAMIPRIL [Suspect]
     Active Substance: RAMIPRIL
     Dosage: 1 DOSAGE FORMS, QD
     Route: 065
     Dates: start: 20241011, end: 20250110
  4. VENLAFAXINE [Suspect]
     Active Substance: VENLAFAXINE HYDROCHLORIDE
     Indication: Depression
     Dosage: 75 MILLIGRAM
     Route: 065
  5. HYDROCHLOROTHIAZIDE [Suspect]
     Active Substance: HYDROCHLOROTHIAZIDE
     Indication: Hypertension
     Dosage: 12.5 UNK
     Route: 061
  6. IMCIVREE [Suspect]
     Active Substance: SETMELANOTIDE
     Indication: Gene mutation
     Dosage: UNK UNK
  7. IMCIVREE [Suspect]
     Active Substance: SETMELANOTIDE
     Dosage: 3 MILLIGRAM, ONCE A DAY
  8. IMCIVREE [Suspect]
     Active Substance: SETMELANOTIDE
     Dosage: DOSE REDUCED, 2.5 MILLIGRAM, QD
     Dates: start: 202406
  9. IMCIVREE [Suspect]
     Active Substance: SETMELANOTIDE
     Dosage: 2 MILLIGRAM, ONCE A DAY
     Dates: start: 20240919
  10. IMCIVREE [Suspect]
     Active Substance: SETMELANOTIDE
     Dosage: 3 MILLIGRAM, ONCE A DAY
     Dates: start: 20241021
  11. IMCIVREE [Suspect]
     Active Substance: SETMELANOTIDE
     Dosage: 2 MILLIGRAM, ONCE A DAY
     Dates: start: 20250212
  12. IMCIVREE [Suspect]
     Active Substance: SETMELANOTIDE
     Dosage: 2 MILLIGRAM, ONCE A DAY
     Dates: start: 20251113
  13. MORPHINE SULFATE [Concomitant]
     Active Substance: MORPHINE SULFATE
     Indication: Pain
     Dosage: 5 MILLIGRAM, TWO TIMES A DAY
     Route: 065
     Dates: start: 202404
  14. MORPHINE SULFATE [Concomitant]
     Active Substance: MORPHINE SULFATE
     Dosage: 3 DOSAGE FORMS
     Route: 065
     Dates: start: 20241011, end: 20241217
  15. MORPHINE SULFATE [Concomitant]
     Active Substance: MORPHINE SULFATE
     Dosage: 6 DOSAGE FORMS
     Route: 065
     Dates: start: 20241217, end: 20250110
  16. FENTANYL [Concomitant]
     Active Substance: FENTANYL
     Indication: Pain
     Dosage: 12 MICROGRAM, 3 TIMES A DAY
     Route: 065
     Dates: start: 202404
  17. PAROXETINE HYDROCHLORIDE [Concomitant]
     Active Substance: PAROXETINE HYDROCHLORIDE
     Indication: Depression
     Dosage: 0.25 MILLIGRAM, ONCE A DAY
     Route: 065
     Dates: start: 20220721
  18. ALPRAZOLAM [Concomitant]
     Active Substance: ALPRAZOLAM
     Indication: Depression
     Dosage: 0.25 MILLIGRAM, QD
     Route: 065
     Dates: start: 20220101
  19. ALPRAZOLAM [Concomitant]
     Active Substance: ALPRAZOLAM
     Indication: Anxiety
  20. OXYCODONE [Concomitant]
     Active Substance: OXYCODONE
     Indication: Back pain
     Dosage: 4 DOSAGE FORMS
     Route: 065
  21. OXYCODONE [Concomitant]
     Active Substance: OXYCODONE
     Dosage: 2 DOSAGE FORMS
     Route: 065
  22. OXYCODONE [Concomitant]
     Active Substance: OXYCODONE
     Dosage: 4 DOSAGE FORMS
     Route: 065
  23. VALIUM [Concomitant]
     Active Substance: DIAZEPAM
     Indication: Product used for unknown indication
     Dosage: 20 MILLIGRAM
     Route: 065
  24. VALIUM [Concomitant]
     Active Substance: DIAZEPAM
     Dosage: 20 MILLIGRAM (4 TABLETS)
     Route: 065
  25. CHLORPROMAZINE [Concomitant]
     Active Substance: CHLORPROMAZINE
     Indication: Anxiety
     Dosage: UNK UNK
     Route: 065
     Dates: start: 20241230, end: 202501
  26. LORAZEPAM [Concomitant]
     Active Substance: LORAZEPAM
     Indication: Product used for unknown indication
     Dosage: 1 DOSAGE FORMS, BID
     Route: 065
     Dates: start: 20241217
  27. DOLIPRANE [Concomitant]
     Active Substance: ACETAMINOPHEN
     Indication: Product used for unknown indication
     Dosage: 3 DOSAGE FORMS
     Route: 065

REACTIONS (3)
  - Suicidal ideation [Not Recovered/Not Resolved]
  - Depression [Not Recovered/Not Resolved]
  - Melanoderma [Not Recovered/Not Resolved]

NARRATIVE: CASE EVENT DATE: 20180501
